FAERS Safety Report 9893083 (Version 2)
Quarter: 2014Q2

REPORT INFORMATION
  Report Type: Spontaneous
  Country: IT (occurrence: IT)
  Receive Date: 20140213
  Receipt Date: 20140410
  Transmission Date: 20141212
  Serious: Yes (Hospitalization)
  Sender: FDA-Public Use
  Company Number: IT-BRISTOL-MYERS SQUIBB COMPANY-20130845

PATIENT
  Age: 84 Year
  Sex: Female

DRUGS (1)
  1. COUMADIN TABS 5 MG [Suspect]
     Indication: ATRIAL FIBRILLATION
     Route: 048
     Dates: end: 20140103

REACTIONS (3)
  - Subarachnoid haemorrhage [Recovering/Resolving]
  - Hypocoagulable state [Recovering/Resolving]
  - Head injury [Recovering/Resolving]
